FAERS Safety Report 16443120 (Version 3)
Quarter: 2020Q4

REPORT INFORMATION
  Report Type: Report from Study
  Country: None (occurrence: CA)
  Receive Date: 20190617
  Receipt Date: 20201022
  Transmission Date: 20210113
  Serious: Yes (Hospitalization, Other)
  Sender: FDA-Public Use
  Company Number: CA-ABBVIE-19K-028-2818399-00

PATIENT
  Sex: Female

DRUGS (3)
  1. HUMIRA [Suspect]
     Active Substance: ADALIMUMAB
     Route: 058
     Dates: start: 2019
  2. HUMIRA [Suspect]
     Active Substance: ADALIMUMAB
     Indication: ANKYLOSING SPONDYLITIS
     Route: 058
     Dates: start: 20180928, end: 201902
  3. HUMIRA [Suspect]
     Active Substance: ADALIMUMAB
     Route: 058
     Dates: start: 202005, end: 2020

REACTIONS (13)
  - Injury [Unknown]
  - Pelvic abscess [Recovering/Resolving]
  - Fall [Recovered/Resolved]
  - Spinal cord injury sacral [Unknown]
  - Spinal fracture [Recovering/Resolving]
  - Fatigue [Recovering/Resolving]
  - Staphylococcal infection [Recovering/Resolving]
  - Pain [Not Recovered/Not Resolved]
  - Traumatic haematoma [Recovering/Resolving]
  - Dyspnoea [Recovering/Resolving]
  - Therapeutic product effect decreased [Unknown]
  - Accident [Unknown]
  - Back injury [Recovering/Resolving]

NARRATIVE: CASE EVENT DATE: 2019
